FAERS Safety Report 8434798-2 (Version None)
Quarter: 2012Q2

REPORT INFORMATION
  Report Type: 
  Country: None (occurrence: None)
  Receive Date: 20120323
  Receipt Date: 20111219
  Transmission Date: 20120825
  Serious: Yes (Hospitalization)
  Sender: FDA-Public Use
  Company Number: 163-21880-11060238

PATIENT
  Age: 83 Year
  Sex: Male

DRUGS (9)
  1. VITAMIN D [Concomitant]
  2. NEXIUM [Concomitant]
  3. REVLIMID [Suspect]
     Indication: MULTIPLE MYELOMA
     Dosage: 10 MG, DAILY X 21, PO, 5 MG, DAILY X 21, PO
     Route: 048
     Dates: start: 20110312
  4. REVLIMID [Suspect]
     Indication: MULTIPLE MYELOMA
     Dosage: 10 MG, DAILY X 21, PO, 5 MG, DAILY X 21, PO
     Route: 048
     Dates: start: 20110401
  5. VITAMIN E [Concomitant]
  6. MULTIVITAMIN [Concomitant]
  7. CITALOPRAM HYDROBROMIDE [Concomitant]
  8. ASPIRIN [Concomitant]
  9. CALCIUM CARBONATE [Concomitant]

REACTIONS (2)
  - RASH PRURITIC [None]
  - DRY SKIN [None]
